FAERS Safety Report 23217828 (Version 1)
Quarter: 2023Q4

REPORT INFORMATION
  Report Type: Spontaneous
  Country: NP (occurrence: NP)
  Receive Date: 20231122
  Receipt Date: 20231122
  Transmission Date: 20240110
  Serious: Yes (Hospitalization, Other)
  Sender: FDA-Public Use
  Company Number: NP-QUAGEN-2023QUALIT00341

PATIENT
  Age: 16 Year
  Sex: Male

DRUGS (2)
  1. VALPROIC ACID [Suspect]
     Active Substance: VALPROIC ACID
     Indication: Generalised tonic-clonic seizure
     Route: 065
  2. VALPROIC ACID [Suspect]
     Active Substance: VALPROIC ACID
     Dosage: OPTIMIZED TO 900 MG IN A WEEK
     Route: 065

REACTIONS (6)
  - Depressed level of consciousness [Unknown]
  - Drooling [Unknown]
  - Sedation [Unknown]
  - Somnolence [Recovered/Resolved]
  - Lethargy [Unknown]
  - Acne [Unknown]
